FAERS Safety Report 4333666-5 (Version None)
Quarter: 2004Q2

REPORT INFORMATION
  Report Type: 
  Country: None (occurrence: None)
  Receive Date: 20040402
  Receipt Date: 20040323
  Transmission Date: 20050107
  Serious: Yes (Hospitalization)
  Sender: FDA-Public Use
  Company Number: USA-2004-0014043

PATIENT
  Age: 78 Year
  Sex: Female

DRUGS (1)
  1. OXYCONTIN [Suspect]
     Indication: PAIN
     Dosage: 10 MG, Q12H, ORAL
     Route: 048
     Dates: start: 20040323

REACTIONS (3)
  - DRUG HYPERSENSITIVITY [None]
  - PRURITUS GENERALISED [None]
  - THROAT TIGHTNESS [None]
